FAERS Safety Report 7483434-0 (Version None)
Quarter: 2011Q2

REPORT INFORMATION
  Report Type: 
  Country: None (occurrence: None)
  Receive Date: 20110517
  Receipt Date: 20110510
  Transmission Date: 20111010
  Serious: Yes (Death, Hospitalization, Other)
  Sender: FDA-Public Use
  Company Number: AT-ELI_LILLY_AND_COMPANY-AT201102007275

PATIENT
  Sex: Male

DRUGS (3)
  1. VITAMIN B-12 [Concomitant]
     Dosage: UNK, UNKNOWN
     Route: 065
  2. FOLIC ACID [Concomitant]
     Dosage: UNK, UNKNOWN
  3. ALIMTA [Suspect]
     Indication: LUNG NEOPLASM MALIGNANT
     Dosage: UNK UNK, UNKNOWN

REACTIONS (4)
  - NEOPLASM MALIGNANT [None]
  - RENAL FAILURE [None]
  - THROMBOCYTOPENIA [None]
  - HEPATIC FAILURE [None]
